FAERS Safety Report 18525234 (Version 3)
Quarter: 2020Q4

REPORT INFORMATION
  Report Type: Spontaneous
  Country: US (occurrence: US)
  Receive Date: 20201120
  Receipt Date: 20201126
  Transmission Date: 20210114
  Serious: Yes (Other)
  Sender: FDA-Public Use
  Company Number: US-SA-2020SA322888

PATIENT

DRUGS (8)
  1. KEVZARA [Suspect]
     Active Substance: SARILUMAB
     Indication: RETINAL VASCULITIS
  2. ACTEMRA [Suspect]
     Active Substance: TOCILIZUMAB
  3. HUMIRA [Suspect]
     Active Substance: ADALIMUMAB
  4. IMURAN [Concomitant]
     Active Substance: AZATHIOPRINE
  5. CYCLOSPORINE. [Concomitant]
     Active Substance: CYCLOSPORINE
  6. KEVZARA [Suspect]
     Active Substance: SARILUMAB
     Indication: GIANT CELL ARTERITIS
  7. KEVZARA [Suspect]
     Active Substance: SARILUMAB
     Indication: POLYMYALGIA RHEUMATICA
     Dosage: UNK
     Dates: start: 2018
  8. PREDNISONE. [Suspect]
     Active Substance: PREDNISONE
     Dosage: ABOVE 20 MG

REACTIONS (8)
  - Diabetes mellitus [Unknown]
  - Off label use [Unknown]
  - Condition aggravated [Unknown]
  - Cone dystrophy [Unknown]
  - Cushingoid [Unknown]
  - Lipohypertrophy [Unknown]
  - Photopsia [Unknown]
  - Diarrhoea [Unknown]

NARRATIVE: CASE EVENT DATE: 2018
